FAERS Safety Report 18121486 (Version 1)
Quarter: 2020Q3

REPORT INFORMATION
  Report Type: Spontaneous
  Country: US (occurrence: US)
  Receive Date: 20200806
  Receipt Date: 20200806
  Transmission Date: 20201103
  Serious: No
  Sender: FDA-Public Use
  Company Number: US-ASSERTIO THERAPEUTICS, INC.-US-2020DEP000182

PATIENT
  Sex: Female

DRUGS (1)
  1. CAMBIA [Suspect]
     Active Substance: DICLOFENAC POTASSIUM
     Indication: MIGRAINE WITHOUT AURA
     Dosage: 50 MG, MIX ONE PACKET WITH 1?2 OUNCES OF WATER, DRINK EVERY 24HRS PRN FOR MIGRAINE QD, MAX 3X/WEEK
     Route: 048

REACTIONS (1)
  - Product administered to patient of inappropriate age [Unknown]
